FAERS Safety Report 20833772 (Version 1)
Quarter: 2022Q2

REPORT INFORMATION
  Report Type: Spontaneous
  Country: SI (occurrence: SI)
  Receive Date: 20220516
  Receipt Date: 20220516
  Transmission Date: 20220721
  Serious: Yes (Other)
  Sender: FDA-Public Use
  Company Number: SI-002147023-NVSC2022SI093669

PATIENT
  Age: 84 Year
  Sex: Female

DRUGS (13)
  1. SIMVASTATIN [Suspect]
     Active Substance: SIMVASTATIN
     Indication: Product used for unknown indication
     Dosage: UNK
     Route: 065
  2. FUROSEMIDE [Suspect]
     Active Substance: FUROSEMIDE
     Indication: Product used for unknown indication
     Dosage: UNK
     Route: 065
  3. BISOPROLOL [Suspect]
     Active Substance: BISOPROLOL
     Indication: Product used for unknown indication
     Dosage: UNK
     Route: 065
  4. EPOETIN ALFA [Suspect]
     Active Substance: ERYTHROPOIETIN
     Indication: Myelodysplastic syndrome
     Dosage: UNK
     Route: 065
  5. EPOETIN ALFA [Suspect]
     Active Substance: ERYTHROPOIETIN
     Indication: Nephrogenic anaemia
  6. CARBAMAZEPINE [Suspect]
     Active Substance: CARBAMAZEPINE
     Indication: Product used for unknown indication
     Dosage: UNK
     Route: 065
  7. RAMIPRIL [Suspect]
     Active Substance: RAMIPRIL
     Indication: Product used for unknown indication
     Dosage: UNK
     Route: 065
  8. ALLOPURINOL [Suspect]
     Active Substance: ALLOPURINOL
     Indication: Product used for unknown indication
     Dosage: UNK
     Route: 065
  9. ISOSORBIDE MONONITRATE [Concomitant]
     Active Substance: ISOSORBIDE MONONITRATE
     Indication: Product used for unknown indication
     Dosage: UNK
     Route: 065
  10. PRAMIPEXOLE [Concomitant]
     Active Substance: PRAMIPEXOLE
     Indication: Product used for unknown indication
     Dosage: UNK
     Route: 065
  11. METFORMIN [Concomitant]
     Active Substance: METFORMIN HYDROCHLORIDE
     Indication: Product used for unknown indication
     Dosage: UNK
     Route: 065
  12. ASPIRIN [Concomitant]
     Active Substance: ASPIRIN
     Indication: Product used for unknown indication
     Dosage: UNK
     Route: 065
  13. DAPAGLIFLOZIN [Concomitant]
     Active Substance: DAPAGLIFLOZIN
     Indication: Product used for unknown indication
     Dosage: UNK
     Route: 065

REACTIONS (13)
  - Cardiac failure chronic [Unknown]
  - Ulcer haemorrhage [Unknown]
  - Melaena [Unknown]
  - Vomiting [Unknown]
  - Dyspnoea exertional [Unknown]
  - Faeces discoloured [Unknown]
  - Conjunctival discolouration [Unknown]
  - Oedema peripheral [Unknown]
  - Petechiae [Unknown]
  - Tongue dry [Unknown]
  - Flatulence [Unknown]
  - Asthenia [Unknown]
  - Dizziness [Unknown]
